FAERS Safety Report 8542393-X (Version None)
Quarter: 2012Q3

REPORT INFORMATION
  Report Type: 
  Country: None (occurrence: None)
  Receive Date: 20120726
  Receipt Date: 20110929
  Transmission Date: 20120928
  Serious: Yes (Other)
  Sender: FDA-Public Use
  Company Number: US-ASTRAZENECA-2011SE58984

PATIENT
  Age: 51 Year
  Sex: Female
  Weight: 56.7 kg

DRUGS (2)
  1. SEROQUEL [Suspect]
     Indication: DEPRESSION
     Route: 048
  2. NEURONTIN [Concomitant]

REACTIONS (9)
  - DECREASED APPETITE [None]
  - SUICIDAL IDEATION [None]
  - TREMOR [None]
  - CONSTIPATION [None]
  - NAUSEA [None]
  - TRISMUS [None]
  - DRY MOUTH [None]
  - VOMITING [None]
  - NASAL CONGESTION [None]
